FAERS Safety Report 7826949-5 (Version None)
Quarter: 2011Q4

REPORT INFORMATION
  Report Type: 
  Country: None (occurrence: None)
  Receive Date: 20111020
  Receipt Date: 20111011
  Transmission Date: 20120403
  Serious: Yes (Hospitalization)
  Sender: FDA-Public Use
  Company Number: IT-JNJFOC-20110910310

PATIENT
  Sex: Female
  Weight: 14 kg

DRUGS (1)
  1. RISPERDAL [Suspect]
     Indication: PRODUCT USED FOR UNKNOWN INDICATION
     Route: 048
     Dates: start: 20110924, end: 20110924

REACTIONS (5)
  - ACCIDENTAL DRUG INTAKE BY CHILD [None]
  - STRABISMUS [None]
  - OPISTHOTONUS [None]
  - SOPOR [None]
  - RESPIRATORY FAILURE [None]
